FAERS Safety Report 25746845 (Version 2)
Quarter: 2025Q4

REPORT INFORMATION
  Report Type: Report from Study
  Country: CA (occurrence: CA)
  Receive Date: 20250901
  Receipt Date: 20251017
  Transmission Date: 20260118
  Serious: Yes (Other)
  Sender: TAKEDA
  Company Number: CA-TAKEDA-2024TUS117727

PATIENT
  Age: 64 Year
  Sex: Female

DRUGS (20)
  1. VEDOLIZUMAB [Suspect]
     Active Substance: VEDOLIZUMAB
     Indication: Crohn^s disease
     Dosage: 300 MILLIGRAM
  2. VEDOLIZUMAB [Suspect]
     Active Substance: VEDOLIZUMAB
     Dosage: 300 MILLIGRAM
  3. VEDOLIZUMAB [Suspect]
     Active Substance: VEDOLIZUMAB
     Dosage: 300 MILLIGRAM
  4. VEDOLIZUMAB [Suspect]
     Active Substance: VEDOLIZUMAB
     Dosage: 300 MILLIGRAM
  5. VEDOLIZUMAB [Suspect]
     Active Substance: VEDOLIZUMAB
     Dosage: 300 MILLIGRAM
  6. PANTOPRAZOLE SODIUM [Suspect]
     Active Substance: PANTOPRAZOLE SODIUM
     Indication: Product used for unknown indication
     Dosage: 40 MILLIGRAM
  7. CALCIUM\VITAMIN D [Concomitant]
     Active Substance: CALCIUM\VITAMIN D
     Dosage: 500 MILLIGRAM
  8. ESTRADIOL [Concomitant]
     Active Substance: ESTRADIOL
     Dosage: 1 MILLIGRAM
  9. TRANDOLAPRIL [Concomitant]
     Active Substance: TRANDOLAPRIL
     Dosage: 1 MILLIGRAM
  10. INDAPAMIDE [Concomitant]
     Active Substance: INDAPAMIDE
     Dosage: 1.25 MILLIGRAM
  11. FERROUS SULFATE [Concomitant]
     Active Substance: FERROUS SULFATE
     Dosage: 300 MILLIGRAM
  12. DAYVIGO [Concomitant]
     Active Substance: LEMBOREXANT
     Dosage: 5 MILLIGRAM
  13. Oracort [Concomitant]
     Dosage: UNK (0.1 UNKNOWN UNIT DOSE)
     Route: 061
  14. PENTASA [Concomitant]
     Active Substance: MESALAMINE
     Dosage: 4 GRAM
  15. NASONEX [Concomitant]
     Active Substance: MOMETASONE FUROATE
     Dosage: 50 MICROGRAM
  16. SYMBICORT [Concomitant]
     Active Substance: BUDESONIDE\FORMOTEROL FUMARATE DIHYDRATE
     Dosage: 200 MICROGRAM
  17. LORATADINE [Concomitant]
     Active Substance: LORATADINE
     Dosage: 10 MILLIGRAM
  18. EPIPEN [Concomitant]
     Active Substance: EPINEPHRINE
     Dosage: 0.3 MILLIGRAM
  19. FUCIDIN [Concomitant]
     Active Substance: FUSIDATE SODIUM
     Dosage: UNK
     Route: 061
  20. MEDROXYPROGESTERONE ACETATE [Concomitant]
     Active Substance: MEDROXYPROGESTERONE ACETATE
     Dosage: 5 MILLIGRAM

REACTIONS (7)
  - Haematochezia [Recovered/Resolved]
  - Abdominal pain [Recovered/Resolved]
  - Bronchospasm [Unknown]
  - Abdominal distension [Recovered/Resolved]
  - Herpes zoster [Recovering/Resolving]
  - Sinusitis [Unknown]
  - Bronchitis [Unknown]

NARRATIVE: CASE EVENT DATE: 20250823
